FAERS Safety Report 6722829-7 (Version None)
Quarter: 2010Q2

REPORT INFORMATION
  Report Type: 
  Country: None (occurrence: None)
  Receive Date: 20100512
  Receipt Date: 20100512
  Transmission Date: 20101027
  Serious: No
  Sender: FDA-Public Use
  Company Number: None

PATIENT
  Sex: Female
  Weight: 72.5755 kg

DRUGS (1)
  1. CRESTOR [Suspect]
     Indication: BLOOD CHOLESTEROL INCREASED
     Dosage: 10 MG QD PO
     Route: 048
     Dates: start: 20091010, end: 20091029

REACTIONS (4)
  - ASTHENIA [None]
  - BALANCE DISORDER [None]
  - IMPAIRED WORK ABILITY [None]
  - PAIN IN EXTREMITY [None]
